FAERS Safety Report 19451467 (Version 1)
Quarter: 2021Q2

REPORT INFORMATION
  Report Type: Spontaneous
  Country: US (occurrence: US)
  Receive Date: 20210622
  Receipt Date: 20210622
  Transmission Date: 20210717
  Serious: Yes (Death)
  Sender: FDA-Public Use
  Company Number: None

PATIENT
  Age: 89 Year
  Sex: Male

DRUGS (6)
  1. ASPIRIN 81MG CHEWABLE TABLETS [Concomitant]
  2. LISINOPRIL 10MG TABLETS [Concomitant]
     Active Substance: LISINOPRIL
  3. PROLIA [Suspect]
     Active Substance: DENOSUMAB
     Dates: start: 20200521, end: 20210622
  4. TYLENOL 500MG E/S (ACETAMINOPHEN) C [Concomitant]
  5. LEVOTHYROXINE 0.05MG (50MCG) TAB [Concomitant]
  6. CALCIUM 500 W/VIT D3 TABLETS [Concomitant]

REACTIONS (1)
  - Death [None]

NARRATIVE: CASE EVENT DATE: 20210622
